FAERS Safety Report 24716019 (Version 1)
Quarter: 2024Q4

REPORT INFORMATION
  Report Type: Report from Study
  Country: US (occurrence: US)
  Receive Date: 20241210
  Receipt Date: 20241210
  Transmission Date: 20250114
  Serious: Yes (Other)
  Sender: ABBVIE
  Company Number: US-ABBVIE-5958487

PATIENT
  Age: 66 Year
  Sex: Male

DRUGS (51)
  1. VENCLEXTA [Suspect]
     Active Substance: VENETOCLAX
     Indication: Hypogammaglobulinaemia
     Dosage: STRENGTH 100 MG FOUR TABLETS
     Route: 048
  2. VENCLEXTA [Suspect]
     Active Substance: VENETOCLAX
     Indication: Hypogammaglobulinaemia
     Dosage: STRENGTH 100 MG FOUR TABLETS
     Route: 048
  3. VENCLEXTA [Suspect]
     Active Substance: VENETOCLAX
     Indication: Hypogammaglobulinaemia
     Dosage: STRENGTH 100 MG FOUR TABLETS
     Route: 048
  4. VENCLEXTA [Suspect]
     Active Substance: VENETOCLAX
     Indication: Hypogammaglobulinaemia
     Dosage: STRENGTH 100 MG FOUR TABLETS
     Route: 048
  5. VENCLEXTA [Suspect]
     Active Substance: VENETOCLAX
     Indication: Hypogammaglobulinaemia
     Dosage: STRENGTH 100 MG FOUR TABLETS
     Route: 048
  6. VENCLEXTA [Suspect]
     Active Substance: VENETOCLAX
     Indication: Hypogammaglobulinaemia
     Dosage: STRENGTH 100 MG FOUR TABLETS
     Route: 048
  7. VENCLEXTA [Suspect]
     Active Substance: VENETOCLAX
     Indication: Hypogammaglobulinaemia
     Dosage: STRENGTH 100 MG FOUR TABLETS FIRST ADMIN DATE 2024 AND LAST ADMIN DATE 15 JUL 2024
     Route: 048
  8. VENCLEXTA [Suspect]
     Active Substance: VENETOCLAX
     Indication: Hypogammaglobulinaemia
     Dosage: STRENGTH 100 MG FOUR TABLETS
     Route: 048
  9. VENCLEXTA [Suspect]
     Active Substance: VENETOCLAX
     Indication: Hypogammaglobulinaemia
     Dosage: STRENGTH 100 MG FOUR TABLETS
     Route: 048
  10. VENCLEXTA [Suspect]
     Active Substance: VENETOCLAX
     Indication: Hypogammaglobulinaemia
     Dosage: STRENGTH 100 MG FOUR TABLETS
     Route: 048
  11. VENCLEXTA [Suspect]
     Active Substance: VENETOCLAX
     Indication: Hypogammaglobulinaemia
     Dosage: STRENGTH 100 MG FOUR TABLETS
     Route: 048
  12. VENCLEXTA [Suspect]
     Active Substance: VENETOCLAX
     Indication: Hypogammaglobulinaemia
     Dosage: STRENGTH 100 MG FOUR TABLETS
     Route: 048
  13. VENCLEXTA [Suspect]
     Active Substance: VENETOCLAX
     Indication: Hypogammaglobulinaemia
     Dosage: STRENGTH 100 MG FOUR TABLETS
     Route: 048
  14. VENCLEXTA [Suspect]
     Active Substance: VENETOCLAX
     Indication: Hypogammaglobulinaemia
     Dosage: STRENGTH 100 MG FOUR TABLETS
     Route: 048
  15. VENCLEXTA [Suspect]
     Active Substance: VENETOCLAX
     Indication: Hypogammaglobulinaemia
     Dosage: STRENGTH 100 MG FOUR TABLETS
     Route: 048
  16. VENCLEXTA [Suspect]
     Active Substance: VENETOCLAX
     Indication: Hypogammaglobulinaemia
     Dosage: WEEK 1
     Route: 048
  17. VENCLEXTA [Suspect]
     Active Substance: VENETOCLAX
     Indication: Hypogammaglobulinaemia
     Dosage: WEEK 2
     Route: 048
  18. VENCLEXTA [Suspect]
     Active Substance: VENETOCLAX
     Indication: Hypogammaglobulinaemia
     Dosage: WEEK 3
     Route: 048
  19. VENCLEXTA [Suspect]
     Active Substance: VENETOCLAX
     Indication: Hypogammaglobulinaemia
     Dosage: WEEK 4
     Route: 048
  20. VENCLEXTA [Suspect]
     Active Substance: VENETOCLAX
     Indication: Hypogammaglobulinaemia
     Dosage: STRENGTH 100 MG FOUR TABLETS
     Route: 048
  21. VENCLEXTA [Suspect]
     Active Substance: VENETOCLAX
     Indication: Hypogammaglobulinaemia
     Dosage: STRENGTH 100 MG FOUR TABLETS
     Route: 048
  22. VENCLEXTA [Suspect]
     Active Substance: VENETOCLAX
     Indication: Hypogammaglobulinaemia
     Dosage: STRENGTH 100 MG FOUR TABLETS
     Route: 048
  23. VENCLEXTA [Suspect]
     Active Substance: VENETOCLAX
     Indication: Hypogammaglobulinaemia
     Dosage: STRENGTH 100 MG FOUR TABLETS
     Route: 048
  24. VENCLEXTA [Suspect]
     Active Substance: VENETOCLAX
     Indication: Hypogammaglobulinaemia
     Dosage: STRENGTH 100 MG FOUR TABLETS
     Route: 048
  25. VENCLEXTA [Suspect]
     Active Substance: VENETOCLAX
     Indication: Hypogammaglobulinaemia
     Dosage: STRENGTH 100 MG FOUR TABLETS
     Route: 048
  26. VENCLEXTA [Suspect]
     Active Substance: VENETOCLAX
     Indication: Hypogammaglobulinaemia
     Dosage: STRENGTH 100 MG FOUR TABLETS
     Route: 048
  27. PERJETA [Concomitant]
     Active Substance: PERTUZUMAB
     Indication: Product used for unknown indication
  28. HERCEPTIN [Concomitant]
     Active Substance: TRASTUZUMAB
     Indication: Product used for unknown indication
  29. ZELBORAF [Concomitant]
     Active Substance: VEMURAFENIB
     Indication: Product used for unknown indication
  30. ERIVEDGE [Concomitant]
     Active Substance: VISMODEGIB
     Indication: Ophthalmologic treatment
  31. LUCENTIS [Concomitant]
     Active Substance: RANIBIZUMAB
     Indication: Respiratory disorder
  32. PULMOZYME [Concomitant]
     Active Substance: DORNASE ALFA
     Indication: Transplant
  33. CELLCEPT [Concomitant]
     Active Substance: MYCOPHENOLATE MOFETIL
     Indication: Viral infection
  34. FUZEON [Concomitant]
     Active Substance: ENFUVIRTIDE
     Indication: Product used for unknown indication
  35. PEGASYS [Concomitant]
     Active Substance: PEGINTERFERON ALFA-2A
     Indication: Product used for unknown indication
  36. COPEGUS [Concomitant]
     Active Substance: RIBAVIRIN
     Indication: Product used for unknown indication
  37. ALTEPLASE [Concomitant]
     Active Substance: ALTEPLASE
     Indication: Product used for unknown indication
  38. TENECTEPLASE [Concomitant]
     Active Substance: TENECTEPLASE
     Indication: Product used for unknown indication
  39. XOLAIR [Suspect]
     Active Substance: OMALIZUMAB
     Indication: Product used for unknown indication
     Route: 065
  40. MABTHERA [Concomitant]
     Active Substance: RITUXIMAB
     Indication: Product used for unknown indication
  41. RITUXAN [Concomitant]
     Active Substance: RITUXIMAB
     Indication: Product used for unknown indication
  42. TOCILIZUMAB [Concomitant]
     Active Substance: TOCILIZUMAB
     Indication: Product used for unknown indication
  43. ACTEMRA [Concomitant]
     Active Substance: TOCILIZUMAB
     Indication: Product used for unknown indication
  44. IBANDRONATE SODIUM [Concomitant]
     Active Substance: IBANDRONATE SODIUM
     Indication: Neoplasm malignant
  45. BONIVA [Concomitant]
     Active Substance: IBANDRONATE SODIUM
     Indication: Neoplasm malignant
  46. AVASTIN [Concomitant]
     Active Substance: BEVACIZUMAB
     Indication: Product used for unknown indication
  47. XELODA [Concomitant]
     Active Substance: CAPECITABINE
     Indication: Product used for unknown indication
  48. TARCEVA [Concomitant]
     Active Substance: ERLOTINIB HYDROCHLORIDE
     Indication: Product used for unknown indication
  49. RIBAVIRIN [Concomitant]
     Active Substance: RIBAVIRIN
     Indication: Product used for unknown indication
  50. FORTOVASE [Concomitant]
     Active Substance: SAQUINAVIR
     Indication: Product used for unknown indication
  51. INVIRASE [Concomitant]
     Active Substance: SAQUINAVIR MESYLATE
     Indication: Product used for unknown indication

REACTIONS (3)
  - Lymphocytic lymphoma [Unknown]
  - Expired product administered [Unknown]
  - Inflammation [Unknown]
